FAERS Safety Report 4897139-3 (Version None)
Quarter: 2006Q1

REPORT INFORMATION
  Report Type: 
  Country: None (occurrence: None)
  Receive Date: 20060127
  Receipt Date: 20060117
  Transmission Date: 20060701
  Serious: Yes (Hospitalization, Other)
  Sender: FDA-Public Use
  Company Number: FRWYE305517JAN06

PATIENT
  Age: 26 Year
  Sex: Male

DRUGS (3)
  1. TAZOCILLINE (PIPERACILLIN/ TAZOBACTAM, INJECTION) [Suspect]
     Dosage: 4 G 3X PER 1 DAY INTRAVENOUS
     Route: 042
     Dates: start: 20051224, end: 20051228
  2. TOBRAMYCIN SULFATE [Concomitant]
  3. TARGOCID [Concomitant]

REACTIONS (7)
  - ARTHRALGIA [None]
  - DYSPNOEA [None]
  - ERYTHEMA [None]
  - EYELID OEDEMA [None]
  - FACE OEDEMA [None]
  - PRURITUS [None]
  - PYREXIA [None]
